FAERS Safety Report 24798203 (Version 2)
Quarter: 2025Q1

REPORT INFORMATION
  Report Type: Report from Study
  Country: US (occurrence: US)
  Receive Date: 20250102
  Receipt Date: 20250121
  Transmission Date: 20250409
  Serious: Yes (Other)
  Sender: ABBVIE
  Company Number: US-ABBVIE-6053029

PATIENT
  Age: 68 Year
  Sex: Female
  Weight: 91 kg

DRUGS (9)
  1. HUMIRA [Suspect]
     Active Substance: ADALIMUMAB
     Indication: Psoriatic arthropathy
     Dosage: CITRATE-FREE, FORM STRENGTH: 40 MG
     Route: 058
     Dates: start: 20180201, end: 202404
  2. HUMIRA [Suspect]
     Active Substance: ADALIMUMAB
     Dosage: CITRATE-FREE, FORM STRENGTH: 40 MG
     Route: 058
     Dates: start: 202406
  3. HUMIRA [Suspect]
     Active Substance: ADALIMUMAB
     Route: 058
  4. CYMBALTA [Concomitant]
     Active Substance: DULOXETINE HYDROCHLORIDE
     Indication: Fibromyalgia
  5. FOLIC ACID [Concomitant]
     Active Substance: FOLIC ACID
     Indication: Product used for unknown indication
  6. TYLENOL ARTHRITIS PAIN [Concomitant]
     Active Substance: ACETAMINOPHEN
     Indication: Arthritis
  7. METHOTREXATE [Concomitant]
     Active Substance: METHOTREXATE
     Indication: Product used for unknown indication
     Dosage: 6 TABLET
  8. MAGNESIUM [Concomitant]
     Active Substance: MAGNESIUM
     Indication: Fibromyalgia
  9. SCHIFF SUPER VITAMIN B COMPLEX [Concomitant]
     Indication: Vitamin supplementation

REACTIONS (5)
  - Osteoarthritis [Recovering/Resolving]
  - Arthralgia [Recovered/Resolved]
  - Joint stiffness [Not Recovered/Not Resolved]
  - Cervical radiculopathy [Recovered/Resolved]
  - Burning sensation [Recovered/Resolved]

NARRATIVE: CASE EVENT DATE: 20240301
